FAERS Safety Report 11241838 (Version 3)
Quarter: 2017Q4

REPORT INFORMATION
  Report Type: Spontaneous
  Country: US (occurrence: US)
  Receive Date: 20150706
  Receipt Date: 20171020
  Transmission Date: 20180320
  Serious: Yes (Hospitalization, Other)
  Sender: FDA-Public Use
  Company Number: US-DSJP-DSU-2015-120676

PATIENT

DRUGS (5)
  1. BENICAR [Suspect]
     Active Substance: OLMESARTAN MEDOXOMIL
     Dosage: 20 MG, QD
     Dates: start: 201203, end: 201312
  2. AZOR [Suspect]
     Active Substance: AMLODIPINE BESYLATE\OLMESARTAN MEDOXOMIL
     Indication: HYPERTENSION
     Dosage: 5/40 MG
     Dates: start: 20070103, end: 201008
  3. BENICAR [Suspect]
     Active Substance: OLMESARTAN MEDOXOMIL
     Indication: HYPERTENSION
     Dosage: 40 MG, QD
     Dates: start: 20070103, end: 20100804
  4. BENICAR HCT [Suspect]
     Active Substance: HYDROCHLOROTHIAZIDE\OLMESARTAN MEDOXOMIL
     Indication: HYPERTENSION
     Dosage: 40/25 MG, UNK
     Dates: start: 20070103, end: 201008
  5. ASPIRIN                            /00002701/ [Concomitant]
     Active Substance: ASPIRIN
     Indication: PRODUCT USED FOR UNKNOWN INDICATION
     Dosage: 81 MG, QD
     Dates: start: 2006

REACTIONS (12)
  - Renal failure [Unknown]
  - Constipation [Unknown]
  - Diverticulum [Unknown]
  - Large intestine polyp [Unknown]
  - Dysphagia [Unknown]
  - Syncope [Unknown]
  - Emotional distress [Not Recovered/Not Resolved]
  - Gastrooesophageal reflux disease [Unknown]
  - Oesophageal motility disorder [Unknown]
  - Malabsorption [Unknown]
  - Gastroenteritis [Unknown]
  - Diverticulitis [Unknown]

NARRATIVE: CASE EVENT DATE: 201008
